FAERS Safety Report 16423298 (Version 1)
Quarter: 2019Q2

REPORT INFORMATION
  Report Type: Other
  Country: PT (occurrence: PT)
  Receive Date: 20190612
  Receipt Date: 20190612
  Transmission Date: 20190711
  Serious: Yes (Disabling)
  Sender: FDA-Public Use
  Company Number: PT-CELLTRION INC.-2019PT021842

PATIENT

DRUGS (1)
  1. TRUXIMA [Suspect]
     Active Substance: RITUXIMAB-ABBS
     Indication: MYOPATHY
     Dosage: 1000 MG PER 1 CYCLE
     Route: 042
     Dates: start: 20181102

REACTIONS (6)
  - Pyrexia [Recovered/Resolved]
  - Arthralgia [Recovered/Resolved]
  - Myalgia [Recovered/Resolved]
  - Product use in unapproved indication [Unknown]
  - Generalised erythema [Recovered/Resolved]
  - Product substitution issue [Recovered/Resolved]

NARRATIVE: CASE EVENT DATE: 20181102
